FAERS Safety Report 6182967-7 (Version None)
Quarter: 2009Q2

REPORT INFORMATION
  Report Type: 
  Country: None (occurrence: None)
  Receive Date: 20090505
  Receipt Date: 20090421
  Transmission Date: 20091009
  Serious: Yes (Other)
  Sender: FDA-Public Use
  Company Number: CHNY2009JP01798

PATIENT
  Age: 36 Year
  Sex: Female

DRUGS (1)
  1. NICOTINE [Suspect]
     Indication: SMOKING CESSATION THERAPY
     Dosage: 21 MG, QD, TRANSDERMAL
     Route: 062
     Dates: start: 20090321, end: 20090417

REACTIONS (4)
  - APPLICATION SITE VESICLES [None]
  - ERYTHEMA [None]
  - HEADACHE [None]
  - NAUSEA [None]
